FAERS Safety Report 7827862-X (Version None)
Quarter: 2011Q4

REPORT INFORMATION
  Report Type: 
  Country: None (occurrence: None)
  Receive Date: 20111019
  Receipt Date: 20111003
  Transmission Date: 20120403
  Serious: Yes (Hospitalization)
  Sender: FDA-Public Use
  Company Number: 1000024628

PATIENT
  Age: 69 Year
  Sex: Female

DRUGS (6)
  1. TRAZODONE HYDROCHLORIDE [Suspect]
     Indication: DEPRESSION
     Dosage: 100 MG (100 MG, 1 IN 1 D), ORAL
     Route: 048
     Dates: start: 20100114, end: 20110216
  2. TENORMIN [Concomitant]
  3. PANTOLOC (PANTOPRAZOLE SODIUM SESQUIHYDRATE) (PANTOPRAZOLE SODIUM SESQ [Concomitant]
  4. MIRTABENE (MIRTAZAPINE (MIRTAZAPINE) [Concomitant]
  5. ESCITALOPRAM (ESCITALOPRAM OXALATE) (TABLETS) [Suspect]
     Indication: DEPRESSION
     Dosage: 20 MG (10 MG, 2 IN 1 D), ORAL
     Route: 048
     Dates: start: 20110114, end: 20110218
  6. PRAXITEN (OXAZEPAM) (OXAZEPINE) [Concomitant]

REACTIONS (3)
  - WITHDRAWAL SYNDROME [None]
  - DRUG INEFFECTIVE [None]
  - DELIRIUM [None]
